FAERS Safety Report 20999162 (Version 4)
Quarter: 2022Q4

REPORT INFORMATION
  Report Type: Report from Study
  Country: US (occurrence: US)
  Receive Date: 20220623
  Receipt Date: 20221010
  Transmission Date: 20230112
  Serious: Yes (Hospitalization, Other)
  Sender: FDA-Public Use
  Company Number: US-NOVARTISTESTPH-NVSC2022US143886

PATIENT
  Age: 71 Year
  Sex: Female

DRUGS (2)
  1. ENTRESTO [Suspect]
     Active Substance: SACUBITRIL\VALSARTAN
     Indication: Product used for unknown indication
     Dosage: 1 DOSAGE FORM, BID (24/26 MG)
     Route: 065
  2. ENTRESTO [Suspect]
     Active Substance: SACUBITRIL\VALSARTAN
     Dosage: 1 DOSAGE FORM (24/26 MG)
     Route: 065
     Dates: start: 202204

REACTIONS (11)
  - Hepatic enzyme increased [Recovering/Resolving]
  - Renal disorder [Recovering/Resolving]
  - Kidney infection [Not Recovered/Not Resolved]
  - Haemorrhage [Unknown]
  - Liver function test increased [Unknown]
  - Epistaxis [Recovering/Resolving]
  - Blood sodium increased [Unknown]
  - Eating disorder [Not Recovered/Not Resolved]
  - Blood pressure fluctuation [Recovering/Resolving]
  - Urinary tract infection [Not Recovered/Not Resolved]
  - Hypotension [Unknown]

NARRATIVE: CASE EVENT DATE: 20220701
